FAERS Safety Report 9001562 (Version 2)
Quarter: 2013Q1

REPORT INFORMATION
  Report Type: Report from Study
  Country: US (occurrence: US)
  Receive Date: 20130107
  Receipt Date: 20130118
  Transmission Date: 20140127
  Serious: Yes (Death, Hospitalization, Other)
  Sender: FDA-Public Use
  Company Number: US-BAYER-2012-107316

PATIENT
  Age: 54 Year
  Sex: Male
  Weight: 105.5 kg

DRUGS (19)
  1. REGORAFENIB [Suspect]
     Indication: COLORECTAL CANCER METASTATIC
     Dosage: DAILY DOSE 160 MG
     Route: 048
     Dates: start: 20120814, end: 20120828
  2. REGORAFENIB [Suspect]
     Indication: COLORECTAL CANCER METASTATIC
     Dosage: 120 MG, UNK
     Route: 048
     Dates: start: 20120925, end: 20121006
  3. OXYCODONE HYDROCHLORIDE [Concomitant]
     Indication: PAIN
     Dosage: DAILY DOSE 20 MG
     Route: 048
     Dates: start: 20120920
  4. OXYCODONE HYDROCHLORIDE [Concomitant]
     Indication: PAIN
     Dosage: 5 MG, 1-2 TABS Q 4-6 HOURS PRN
     Dates: start: 2011
  5. OXYCODONE HYDROCHLORIDE [Concomitant]
     Indication: PAIN
     Dosage: 20 MG, TID
     Route: 048
     Dates: start: 2011
  6. OXYCONTIN [Concomitant]
     Indication: PAIN
     Dosage: DAILY DOSE 90 MG
     Route: 048
     Dates: start: 20120920
  7. OXYCONTIN [Concomitant]
     Indication: PAIN
     Dosage: 20 MG, TID
     Route: 048
  8. LEVOXYL [Concomitant]
     Indication: HYPOTHYROIDISM
     Dosage: DAILY DOSE 125 ?G
     Route: 048
     Dates: start: 20120920
  9. FLOMAX [TAMSULOSIN HYDROCHLORIDE] [Concomitant]
     Indication: URINARY RETENTION
     Dosage: DAILY DOSE .4 MG
     Route: 048
     Dates: start: 20120816, end: 20121011
  10. MINOCYCLINE [Concomitant]
     Indication: ACNE
     Dosage: DAILY DOSE 200 MG
     Route: 048
     Dates: start: 2003
  11. NEURONTIN [Concomitant]
     Indication: NEUROPATHY PERIPHERAL
     Dosage: DAILY DOSE 900 MG
     Route: 048
     Dates: start: 20111115
  12. NEURONTIN [Concomitant]
     Indication: NEUROPATHY PERIPHERAL
     Dosage: DAILY DOSE 1800 MG
     Route: 048
     Dates: start: 20111115
  13. LASIX [Concomitant]
     Indication: OEDEMA
     Dosage: DAILY DOSE 40 MG
     Route: 048
     Dates: start: 20120701, end: 20120809
  14. PANTOPRAZOLE [Concomitant]
     Indication: GASTROOESOPHAGEAL REFLUX DISEASE
     Dosage: DAILY DOSE 40 MG
     Route: 048
     Dates: start: 20121002, end: 20121007
  15. METFORMIN [Concomitant]
     Dosage: 500 MG, BID
     Route: 048
     Dates: start: 2009
  16. SYNTHROID [Concomitant]
     Dosage: 0.88 MG
     Route: 048
     Dates: start: 2011
  17. LANTUS [Concomitant]
     Dosage: 60 UNITS
     Route: 058
     Dates: start: 2009
  18. NOVOLOG [Concomitant]
     Dosage: 20 UNITS
     Route: 058
     Dates: start: 2009
  19. PROTONIX [Concomitant]
     Dosage: 40 MG, QD
     Dates: start: 20121002

REACTIONS (4)
  - General physical health deterioration [Fatal]
  - Ascites [Not Recovered/Not Resolved]
  - Fall [Recovered/Resolved]
  - Hyperbilirubinaemia [None]
